FAERS Safety Report 6286712-6 (Version None)
Quarter: 2009Q3

REPORT INFORMATION
  Report Type: 
  Country: None (occurrence: None)
  Receive Date: 20090727
  Receipt Date: 20090727
  Transmission Date: 20100115
  Serious: Yes (Other)
  Sender: FDA-Public Use
  Company Number: None

PATIENT
  Sex: Female
  Weight: 93.441 kg

DRUGS (2)
  1. ZICAM SWABS MATRIXX INITIATIVES [Suspect]
     Dosage: 2 TIMES 1 SWAB MORNING AND EVENING NOSE
     Route: 045
     Dates: start: 20061001, end: 20090301
  2. ZICAM NASAL SPRAY [Suspect]
     Indication: NASOPHARYNGITIS
     Dosage: 1 SPRAY EACH NOSTRIL DURING DAY NOSE
     Route: 045
     Dates: start: 20061001, end: 20090301

REACTIONS (5)
  - AGEUSIA [None]
  - ANOSMIA [None]
  - NO THERAPEUTIC RESPONSE [None]
  - RHINALGIA [None]
  - SINUSITIS [None]
